FAERS Safety Report 7389333-7 (Version None)
Quarter: 2011Q2

REPORT INFORMATION
  Report Type: 
  Country: None (occurrence: None)
  Receive Date: 20110401
  Receipt Date: 20110325
  Transmission Date: 20111010
  Serious: Yes (Other)
  Sender: FDA-Public Use
  Company Number: A0919753A

PATIENT
  Age: 77 Year
  Sex: Male
  Weight: 87.1 kg

DRUGS (14)
  1. DIOVAN [Concomitant]
  2. RED YEAST RICE [Concomitant]
  3. FOLIC ACID [Concomitant]
  4. HYDROCHLOROTHIAZIDE [Concomitant]
  5. TRAZODONE HCL [Concomitant]
  6. AMLODIPINE [Concomitant]
  7. VITAMIN B-12 [Concomitant]
  8. LORAZEPAM [Concomitant]
  9. MILK THISTLE [Concomitant]
  10. EVEROLIMUS [Suspect]
     Dosage: 5MG PER DAY
     Route: 048
     Dates: start: 20110217
  11. VITAMIN D [Concomitant]
  12. FISH OIL [Concomitant]
  13. ASCORBIC ACID [Concomitant]
  14. PAZOPANIB [Suspect]
     Dosage: 600MG PER DAY
     Route: 048
     Dates: start: 20110217

REACTIONS (2)
  - BLOOD URIC ACID INCREASED [None]
  - RASH [None]
